FAERS Safety Report 13805077 (Version 2)
Quarter: 2017Q3

REPORT INFORMATION
  Report Type: Spontaneous
  Country: US (occurrence: US)
  Receive Date: 20170728
  Receipt Date: 20170731
  Transmission Date: 20171127
  Serious: No
  Sender: FDA-Public Use
  Company Number: US-TEVA-790625ACC

PATIENT
  Sex: Female

DRUGS (6)
  1. COPAXONE [Suspect]
     Active Substance: GLATIRAMER ACETATE
     Indication: MULTIPLE SCLEROSIS
     Route: 058
     Dates: start: 20151006
  2. FLOMAX [Concomitant]
     Active Substance: TAMSULOSIN HYDROCHLORIDE
  3. SYNTHROID [Concomitant]
     Active Substance: LEVOTHYROXINE SODIUM
  4. VALTREX [Concomitant]
     Active Substance: VALACYCLOVIR HYDROCHLORIDE
  5. VITAMIN C [Concomitant]
     Active Substance: ASCORBIC ACID
  6. FOLIC ACID VITAMIN C B COMPLEX [Concomitant]

REACTIONS (3)
  - Memory impairment [Not Recovered/Not Resolved]
  - Gait disturbance [Not Recovered/Not Resolved]
  - Headache [Not Recovered/Not Resolved]
